FAERS Safety Report 24743379 (Version 1)
Quarter: 2024Q4

REPORT INFORMATION
  Report Type: Spontaneous
  Country: FR (occurrence: FR)
  Receive Date: 20241217
  Receipt Date: 20241217
  Transmission Date: 20250115
  Serious: Yes (Hospitalization)
  Sender: PFIZER
  Company Number: None

PATIENT
  Age: 91 Year
  Sex: Male
  Weight: 63 kg

DRUGS (2)
  1. CLINDAMYCIN [Suspect]
     Active Substance: CLINDAMYCIN
     Indication: Osteitis
     Dosage: 2 DF, 3X/DAY
     Route: 048
     Dates: start: 20241024
  2. BACTRIM [Suspect]
     Active Substance: SULFAMETHOXAZOLE\TRIMETHOPRIM
     Indication: Osteitis
     Dosage: 3 DF, 1X/DAY
     Route: 048
     Dates: start: 20241024

REACTIONS (2)
  - Acute kidney injury [Not Recovered/Not Resolved]
  - Hyperkalaemia [Not Recovered/Not Resolved]

NARRATIVE: CASE EVENT DATE: 20241031
